FAERS Safety Report 5330977-1 (Version None)
Quarter: 2007Q2

REPORT INFORMATION
  Report Type: 
  Country: None (occurrence: None)
  Receive Date: 20070517
  Receipt Date: 20070502
  Transmission Date: 20071010
  Serious: Yes (Other)
  Sender: FDA-Public Use
  Company Number: 2007RR-07370

PATIENT
  Age: 40 Year
  Sex: Male

DRUGS (1)
  1. RANITIDINE [Suspect]

REACTIONS (1)
  - DERMATITIS CONTACT [None]
